FAERS Safety Report 8341516-5 (Version None)
Quarter: 2012Q2

REPORT INFORMATION
  Report Type: 
  Country: None (occurrence: None)
  Receive Date: 20120507
  Receipt Date: 20100210
  Transmission Date: 20120825
  Serious: No
  Sender: FDA-Public Use
  Company Number: US-TEVA-2010000805

PATIENT
  Sex: Female
  Weight: 83.082 kg

DRUGS (5)
  1. ALLOPURINOL [Concomitant]
     Indication: PROPHYLAXIS
  2. RITUXAN [Concomitant]
     Indication: NODAL MARGINAL ZONE B-CELL LYMPHOMA
  3. TREANDA [Suspect]
     Indication: NODAL MARGINAL ZONE B-CELL LYMPHOMA
  4. TREANDA [Suspect]
     Indication: NON-HODGKIN'S LYMPHOMA
     Route: 042
     Dates: start: 20090504, end: 20090929
  5. RITUXAN [Concomitant]
     Indication: NON-HODGKIN'S LYMPHOMA
     Dates: start: 20090504

REACTIONS (1)
  - THROMBOPHLEBITIS [None]
